FAERS Safety Report 13507656 (Version 1)
Quarter: 2017Q2

REPORT INFORMATION
  Report Type: Spontaneous
  Country: US (occurrence: US)
  Receive Date: 20170503
  Receipt Date: 20170503
  Transmission Date: 20170830
  Serious: Yes (Hospitalization)
  Sender: FDA-Public Use
  Company Number: None

PATIENT
  Age: 54 Year
  Sex: Female

DRUGS (6)
  1. HYDROCO/APAP [Concomitant]
     Active Substance: ACETAMINOPHEN\HYDROCODONE
  2. IMURAN [Concomitant]
     Active Substance: AZATHIOPRINE
  3. PREDNISONE. [Concomitant]
     Active Substance: PREDNISONE
  4. ONDANSETRON [Concomitant]
     Active Substance: ONDANSETRON
  5. REMICADE [Suspect]
     Active Substance: INFLIXIMAB
     Indication: CROHN^S DISEASE
     Dosage: ?          OTHER FREQUENCY:WK 0,2,6 THEN Q8WK;?
     Route: 042
     Dates: start: 20170420
  6. OXYCODONE AND ACETAMINOPHEN [Concomitant]
     Active Substance: ACETAMINOPHEN\OXYCODONE HYDROCHLORIDE

REACTIONS (2)
  - Intestinal obstruction [None]
  - Crohn^s disease [None]

NARRATIVE: CASE EVENT DATE: 20170426
